FAERS Safety Report 12544276 (Version 1)
Quarter: 2016Q3

REPORT INFORMATION
  Report Type: Spontaneous
  Country: US (occurrence: US)
  Receive Date: 20160711
  Receipt Date: 20160711
  Transmission Date: 20161109
  Serious: Yes (Other)
  Sender: FDA-Public Use
  Company Number: US-ACTAVIS-2016-14768

PATIENT
  Age: 48 Year
  Sex: Female

DRUGS (4)
  1. CARBOPLATIN. [Concomitant]
     Active Substance: CARBOPLATIN
     Indication: ADENOCARCINOMA OF THE CERVIX
     Dosage: AUC = 5 (EVERY 21 DAYS FOR A TOTAL OF 6 DOSES )
     Route: 065
  2. CISPLATIN. [Concomitant]
     Active Substance: CISPLATIN
     Indication: ADENOCARCINOMA OF THE CERVIX
     Dosage: 40 MG/M2, CYCLICAL, WEEKLY FOR 6 DOSES
     Route: 042
  3. PACLITAXEL (ATLLC) [Suspect]
     Active Substance: PACLITAXEL
     Indication: ADENOCARCINOMA OF THE CERVIX
     Dosage: EVERY 21 DAYS FOR A TOTAL OF 6 DOSES
     Route: 042
  4. PEGFILGRASTIM [Concomitant]
     Active Substance: PEGFILGRASTIM
     Indication: PRODUCT USED FOR UNKNOWN INDICATION
     Dosage: UNK
     Route: 065

REACTIONS (1)
  - Peripheral sensory neuropathy [Recovered/Resolved]
